FAERS Safety Report 9285464 (Version 1)
Quarter: 2013Q2

REPORT INFORMATION
  Report Type: Spontaneous
  Country: US (occurrence: US)
  Receive Date: 20130513
  Receipt Date: 20130513
  Transmission Date: 20140414
  Serious: No
  Sender: FDA-Public Use
  Company Number: US-PFIZER INC-2013145745

PATIENT
  Sex: Female

DRUGS (2)
  1. GABAPENTIN [Suspect]
     Indication: NERVE INJURY
     Dosage: UNK
  2. GABAPENTIN [Suspect]
     Indication: NEUROPATHY PERIPHERAL

REACTIONS (3)
  - Off label use [Unknown]
  - Drug ineffective for unapproved indication [Unknown]
  - Weight increased [Unknown]
